FAERS Safety Report 10262849 (Version 1)
Quarter: 2014Q2

REPORT INFORMATION
  Report Type: Report from Study
  Country: US (occurrence: US)
  Receive Date: 20140626
  Receipt Date: 20140626
  Transmission Date: 20141212
  Serious: Yes (Other)
  Sender: FDA-Public Use
  Company Number: US-MYLANLABS-2013S1019302

PATIENT
  Age: 48 Year
  Sex: Male

DRUGS (9)
  1. CLOZAPINE TABLETS [Suspect]
     Indication: SCHIZOPHRENIA
     Route: 048
     Dates: start: 20130704, end: 20130822
  2. CLOZAPINE TABLETS [Suspect]
     Indication: SCHIZOPHRENIA
     Route: 048
     Dates: start: 20130704, end: 20130822
  3. HALDOL [Concomitant]
     Route: 048
  4. HALDOL [Concomitant]
     Route: 030
     Dates: start: 20130826
  5. DEPAKOTE [Concomitant]
     Route: 048
  6. COGENTIN [Concomitant]
     Route: 048
  7. TRAZODONE [Concomitant]
     Route: 048
  8. GEODON [Concomitant]
     Indication: AGITATION
     Dosage: Q6H PRN
     Route: 048
  9. XANAX [Concomitant]
     Indication: ANXIETY
     Route: 048

REACTIONS (1)
  - Granulocytopenia [Not Recovered/Not Resolved]
